FAERS Safety Report 21325744 (Version 2)
Quarter: 2022Q4

REPORT INFORMATION
  Report Type: Spontaneous
  Country: None (occurrence: DE)
  Receive Date: 20220912
  Receipt Date: 20221116
  Transmission Date: 20230113
  Serious: Yes (Other)
  Sender: FDA-Public Use
  Company Number: DE-Ascend Therapeutics US, LLC-2132790

PATIENT
  Age: 60 Year
  Sex: Female
  Weight: 69 kg

DRUGS (9)
  1. ESTROGEL [Suspect]
     Active Substance: ESTRADIOL
     Indication: Menopause
     Route: 065
  2. ESTROGEL [Suspect]
     Active Substance: ESTRADIOL
  3. ESTRADIOL [Suspect]
     Active Substance: ESTRADIOL
     Route: 065
  4. ESTRADIOL [Suspect]
     Active Substance: ESTRADIOL
     Route: 065
     Dates: start: 201507, end: 201810
  5. ESTRIOL [Suspect]
     Active Substance: ESTRIOL
     Route: 065
  6. PROGESTERONE [Suspect]
     Active Substance: PROGESTERONE
     Route: 065
  7. PROGESTERONE [Suspect]
     Active Substance: PROGESTERONE
     Route: 065
  8. PROGESTERONE [Suspect]
     Active Substance: PROGESTERONE
     Route: 065
     Dates: start: 2015
  9. Lenzetto(ESTRADIOL) [Concomitant]
     Route: 065

REACTIONS (6)
  - Sudden hearing loss [Unknown]
  - Insomnia [Recovered/Resolved]
  - Hormone level abnormal [Unknown]
  - Eye disorder [Unknown]
  - Feeling abnormal [Unknown]
  - Product prescribing error [None]
